FAERS Safety Report 16223590 (Version 2)
Quarter: 2019Q2

REPORT INFORMATION
  Report Type: Spontaneous
  Country: US (occurrence: US)
  Receive Date: 20190422
  Receipt Date: 20190605
  Transmission Date: 20190711
  Serious: No
  Sender: FDA-Public Use
  Company Number: US-PFIZER INC-2019164297

PATIENT
  Age: 24 Year
  Sex: Female
  Weight: 51.26 kg

DRUGS (2)
  1. AZITHROMYCIN ANHYDROUS. [Suspect]
     Active Substance: AZITHROMYCIN ANHYDROUS
     Dosage: 250 MG, DAILY (TWO PILLS THE FIRST DAY AND THEN EVERY DAY YOU TAKE ONE MORE PILL)
     Route: 048
     Dates: end: 201904
  2. AZITHROMYCIN ANHYDROUS. [Suspect]
     Active Substance: AZITHROMYCIN ANHYDROUS
     Indication: PHARYNGITIS STREPTOCOCCAL
     Dosage: 500 MG, DAILY (TWO PILLS THE FIRST DAY AND THEN EVERY DAY YOU TAKE ONE MORE PILL)
     Route: 048
     Dates: start: 20190410

REACTIONS (3)
  - Nightmare [Unknown]
  - Fall [Unknown]
  - Pain [Unknown]

NARRATIVE: CASE EVENT DATE: 20190410
